FAERS Safety Report 16353887 (Version 1)
Quarter: 2019Q2

REPORT INFORMATION
  Report Type: Spontaneous
  Country: JP (occurrence: JP)
  Receive Date: 20190524
  Receipt Date: 20190524
  Transmission Date: 20190711
  Serious: Yes (Other)
  Sender: FDA-Public Use
  Company Number: JP-PFIZER INC-2019212913

PATIENT
  Sex: Male

DRUGS (1)
  1. LYRICA [Suspect]
     Active Substance: PREGABALIN
     Dosage: 25 MG, 3X/DAY (IN THE MORNING AND IN THE EVENING AND BEFORE BEDTIME)
     Route: 048

REACTIONS (3)
  - Syncope [Unknown]
  - Fall [Unknown]
  - Loss of consciousness [Unknown]
